FAERS Safety Report 4828079-3 (Version None)
Quarter: 2005Q4

REPORT INFORMATION
  Report Type: 
  Country: None (occurrence: None)
  Receive Date: 20051110
  Receipt Date: 20051104
  Transmission Date: 20060501
  Serious: Yes (Hospitalization)
  Sender: FDA-Public Use
  Company Number: 2005-04304

PATIENT
  Age: 48 Year
  Sex: Female

DRUGS (1)
  1. TRELSTAR DEPOT [Suspect]
     Indication: UTERINE LEIOMYOMA
     Dosage: 3.75 MG, SINGLE, INTRAMUSCULAR
     Route: 030
     Dates: start: 20050724, end: 20050821

REACTIONS (2)
  - METRORRHAGIA [None]
  - THERAPY NON-RESPONDER [None]
